FAERS Safety Report 9316446 (Version 1)
Quarter: 2013Q2

REPORT INFORMATION
  Report Type: Spontaneous
  Country: US (occurrence: None)
  Receive Date: 20130522
  Receipt Date: 20130522
  Transmission Date: 20140414
  Serious: Yes (Hospitalization)
  Sender: FDA-Public Use
  Company Number: SYM-2013-03734

PATIENT
  Age: 83 Year
  Sex: Female

DRUGS (3)
  1. MESTINON [Suspect]
     Indication: MYASTHENIA GRAVIS
     Dosage: 1 IN 1 D, ORAL
     Route: 048
     Dates: start: 20130508
  2. PYRIDOSTIGMINE [Suspect]
     Indication: MYASTHENIA GRAVIS
     Dosage: 1 IN 1 DAY?
     Dates: start: 20120508
  3. PYRIDOSTIGMINE (PYRIDOSTIGMINE) (TABLET) (PYRIDOSTIGMINE) [Concomitant]

REACTIONS (4)
  - Gastrointestinal haemorrhage [None]
  - Medication residue present [None]
  - Unevaluable event [None]
  - Product quality issue [None]
